FAERS Safety Report 11574628 (Version 1)
Quarter: 2015Q3

REPORT INFORMATION
  Report Type: Spontaneous
  Country: US (occurrence: None)
  Receive Date: 20150929
  Receipt Date: 20150929
  Transmission Date: 20151125
  Serious: No
  Sender: FDA-Public Use
  Company Number: None

PATIENT
  Age: 77 Year
  Sex: Female
  Weight: 56.25 kg

DRUGS (6)
  1. LISINOPRIL AND HYDROCHLOROTHIAZIDE [Concomitant]
     Active Substance: HYDROCHLOROTHIAZIDE\LISINOPRIL
  2. COMPLETE MULTIVITAMIN [Concomitant]
     Active Substance: VITAMINS
  3. CALCIUM W/ VITAMIN D [Concomitant]
  4. FISH OIL [Concomitant]
     Active Substance: FISH OIL
  5. GABAPENTIN CAP 100 MG [Suspect]
     Active Substance: GABAPENTIN
     Indication: SLEEP DISORDER
     Dosage: 1 TO 2 CAPSULES NIGHT
     Route: 048
     Dates: start: 20150906, end: 20150912
  6. BUTAL/APAP [Concomitant]

REACTIONS (6)
  - Headache [None]
  - Pruritus [None]
  - Abdominal discomfort [None]
  - Insomnia [None]
  - Fatigue [None]
  - Visual impairment [None]

NARRATIVE: CASE EVENT DATE: 20150907
